FAERS Safety Report 5671706-1 (Version None)
Quarter: 2008Q2

REPORT INFORMATION
  Report Type: 
  Country: None (occurrence: None)
  Receive Date: 20080229
  Receipt Date: 20071210
  Transmission Date: 20081010
  Serious: Yes (Other)
  Sender: FDA-Public Use
  Company Number: PHEH2007US15000

PATIENT
  Age: 73 Year
  Sex: Female
  Weight: 61.7 kg

DRUGS (5)
  1. EXJADE [Suspect]
     Indication: IRON METABOLISM DISORDER
     Dosage: 1250 MG, QD, ORAL
     Route: 048
     Dates: start: 20071113
  2. ATENOLOL [Concomitant]
  3. CLARINEX /USA/ (DESLORATADINE) [Concomitant]
  4. LORAZEPAM [Concomitant]
  5. BONIVA [Concomitant]

REACTIONS (2)
  - RASH GENERALISED [None]
  - URTICARIA [None]
